FAERS Safety Report 5672023-6 (Version None)
Quarter: 2008Q1

REPORT INFORMATION
  Report Type: 
  Country: None (occurrence: None)
  Receive Date: 20080314
  Receipt Date: 20080227
  Transmission Date: 20080703
  Serious: Yes (Other)
  Sender: FDA-Public Use
  Company Number: 8030200

PATIENT
  Age: 20 Year
  Sex: Male

DRUGS (1)
  1. KEPPRA [Suspect]
     Dosage: 2/D

REACTIONS (3)
  - AUTOIMMUNE THROMBOCYTOPENIA [None]
  - COLD AGGLUTININS POSITIVE [None]
  - EPISTAXIS [None]
